FAERS Safety Report 8200918-8 (Version None)
Quarter: 2012Q1

REPORT INFORMATION
  Report Type: 
  Country: None (occurrence: None)
  Receive Date: 20120312
  Receipt Date: 20110808
  Transmission Date: 20120608
  Serious: No
  Sender: FDA-Public Use
  Company Number: US-ABBOTT-11P-163-0846094-00

PATIENT
  Sex: Female
  Weight: 72.64 kg

DRUGS (3)
  1. UNKNOWN MEDICATION [Suspect]
     Indication: CONTRACEPTION
  2. LUPRON DEPOT [Suspect]
     Indication: ENDOMETRIOSIS
     Dates: start: 20110401
  3. UNKNOWN MEDICATION [Suspect]
     Indication: HOT FLUSH

REACTIONS (4)
  - HEADACHE [None]
  - HOT FLUSH [None]
  - MALAISE [None]
  - VULVOVAGINAL DRYNESS [None]
